FAERS Safety Report 24811340 (Version 1)
Quarter: 2025Q1

REPORT INFORMATION
  Report Type: Spontaneous
  Country: CN (occurrence: CN)
  Receive Date: 20250106
  Receipt Date: 20250106
  Transmission Date: 20250409
  Serious: Yes (Other)
  Sender: ALEXION PHARMACEUTICALS
  Company Number: CN-ASTRAZENECA-202412CHN025557CN

PATIENT
  Age: 61 Year

DRUGS (4)
  1. IRESSA [Suspect]
     Active Substance: GEFITINIB
     Indication: Lung carcinoma cell type unspecified recurrent
     Dosage: 250 MILLIGRAM, QD
  2. IRESSA [Suspect]
     Active Substance: GEFITINIB
     Dosage: 250 MILLIGRAM, QD
     Route: 048
  3. IRESSA [Suspect]
     Active Substance: GEFITINIB
     Dosage: 250 MILLIGRAM, QD
  4. IRESSA [Suspect]
     Active Substance: GEFITINIB
     Dosage: 250 MILLIGRAM, QD
     Route: 048

REACTIONS (1)
  - Erysipelas [Recovering/Resolving]
